FAERS Safety Report 10319749 (Version 2)
Quarter: 2015Q1

REPORT INFORMATION
  Report Type: Other
  Country: None (occurrence: US)
  Receive Date: 20140719
  Receipt Date: 20150219
  Transmission Date: 20150720
  Serious: Yes (Death, Hospitalization)
  Sender: FDA-Public Use
  Company Number: US-GSKPPD-2014GSK017986

PATIENT
  Age: 48 Year
  Sex: Male

DRUGS (9)
  1. NORVASC [Concomitant]
     Active Substance: AMLODIPINE BESYLATE
     Dates: start: 200611
  2. ASPIRIN. [Concomitant]
     Active Substance: ASPIRIN
     Dates: start: 200611
  3. INDERAL [Concomitant]
     Active Substance: PROPRANOLOL HYDROCHLORIDE
     Dates: start: 200611
  4. ZESTRIL [Concomitant]
     Active Substance: LISINOPRIL
     Dates: start: 200611
  5. AVANDIA [Suspect]
     Active Substance: ROSIGLITAZONE MALEATE
     Indication: DIABETES MELLITUS
     Dosage: AVANDIA WAS NOT LISTED AMONG THE PATIENT^S RECORDS REVIEWED.
     Route: 048
  6. PLAVIX [Concomitant]
     Active Substance: CLOPIDOGREL BISULFATE
     Dates: start: 200611
  7. ALDACTONE [Concomitant]
     Active Substance: SPIRONOLACTONE
     Dates: start: 200611
  8. LASIX [Concomitant]
     Active Substance: FUROSEMIDE
  9. CLONIDINE. [Concomitant]
     Active Substance: CLONIDINE
     Dates: start: 200611

REACTIONS (4)
  - Malignant hypertension [Recovered/Resolved]
  - Cardiomyopathy [Fatal]
  - Coronary artery disease [Unknown]
  - Cerebral infarction [Recovered/Resolved]

NARRATIVE: CASE EVENT DATE: 20061116
